FAERS Safety Report 9268828 (Version 1)
Quarter: 2013Q2

REPORT INFORMATION
  Report Type: Spontaneous
  Country: VE (occurrence: VE)
  Receive Date: 20130502
  Receipt Date: 20130502
  Transmission Date: 20140414
  Serious: Yes (Hospitalization)
  Sender: FDA-Public Use
  Company Number: VE-ROXANE LABORATORIES, INC.-2013-RO-00650RO

PATIENT
  Age: 40 Year
  Sex: Female

DRUGS (4)
  1. LITHIUM CARBONATE [Suspect]
     Indication: BIPOLAR I DISORDER
     Dosage: 600 MG
  2. LITHIUM CARBONATE [Suspect]
     Indication: PREMENSTRUAL SYNDROME
  3. QUETIAPINE FUMARATE [Suspect]
     Indication: BIPOLAR DISORDER
     Dosage: 600 MG
  4. QUETIAPINE FUMARATE [Suspect]
     Indication: PREMENSTRUAL SYNDROME

REACTIONS (1)
  - Hyperandrogenism [Recovered/Resolved]
